FAERS Safety Report 22153305 (Version 1)
Quarter: 2023Q1

REPORT INFORMATION
  Report Type: Spontaneous
  Country: US (occurrence: US)
  Receive Date: 20230329
  Receipt Date: 20230329
  Transmission Date: 20230417
  Serious: Yes (Hospitalization, Other)
  Sender: FDA-Public Use
  Company Number: US-JNJFOC-20230367221

PATIENT
  Sex: Male
  Weight: 62.198 kg

DRUGS (1)
  1. ERLEADA [Suspect]
     Active Substance: APALUTAMIDE
     Indication: Prostate cancer stage IV
     Route: 048

REACTIONS (6)
  - Prostate cancer metastatic [Unknown]
  - Metastases to bone [Unknown]
  - Hospitalisation [Unknown]
  - Product dose omission issue [Unknown]
  - Insomnia [Unknown]
  - Pain [Unknown]
